FAERS Safety Report 24322414 (Version 1)
Quarter: 2024Q3

REPORT INFORMATION
  Report Type: Spontaneous
  Country: FR (occurrence: FR)
  Receive Date: 20240916
  Receipt Date: 20240916
  Transmission Date: 20241017
  Serious: Yes (Hospitalization)
  Sender: BAXTER
  Company Number: None

PATIENT
  Age: 75 Year
  Sex: Male
  Weight: 72.3 kg

DRUGS (10)
  1. PROPOFOL [Suspect]
     Active Substance: PROPOFOL
     Indication: General anaesthesia
     Dosage: 200 MG 1 TOTAL (DOSAGE TEXT: 200 MG ONCE)
     Route: 042
     Dates: start: 20240719, end: 20240719
  2. ATRACURIUM [Suspect]
     Active Substance: ATRACURIUM
     Indication: General anaesthesia
     Dosage: 50 ?G 1 TOTAL (DOSAGE TEXT: 50 ?G ONCE)
     Route: 042
     Dates: start: 20240719, end: 20240719
  3. LOVENOX [Suspect]
     Active Substance: ENOXAPARIN SODIUM
     Indication: General anaesthesia
     Dosage: (4,000 IU ANTI-XA/0.4 ML, SOLUTION FOR INJECTION IN CARTRIDGE) DOSAGE TEXT: 4000 IU/DAY
     Route: 058
     Dates: start: 20240719, end: 20240723
  4. TRAMADOL HYDROCHLORIDE [Suspect]
     Active Substance: TRAMADOL HYDROCHLORIDE
     Indication: General anaesthesia
     Dosage: 100 MG 1 TOTAL (DOSAGE TEXT: 100 MG ONCE)
     Route: 042
     Dates: start: 20240719, end: 20240719
  5. SUFENTANIL [Suspect]
     Active Substance: SUFENTANIL
     Indication: General anaesthesia
     Dosage: 20 ?G 1 TOTAL (DOSAGE TEXT: 20 ?G ONCE)
     Route: 042
     Dates: start: 20240719, end: 20240719
  6. CEFAZOLIN SODIUM [Suspect]
     Active Substance: CEFAZOLIN SODIUM
     Indication: Antibiotic prophylaxis
     Dosage: 2 G 1 TOTAL (DOSAGE TEXT: 2 G ONCE)
     Route: 042
     Dates: start: 20240719, end: 20240719
  7. KETOPROFEN [Suspect]
     Active Substance: KETOPROFEN
     Indication: Thrombosis prophylaxis
     Dosage: 100 MG 1 TOTAL (DOSAGE TEXT: 100 MG ONCE)
     Route: 042
     Dates: start: 20240719, end: 20240719
  8. DROPERIDOL [Suspect]
     Active Substance: DROPERIDOL
     Indication: General anaesthesia
     Dosage: 1.2 MG 1 TOTAL (DOSAGE TEXT: 1.2 MG ONCE)
     Route: 042
     Dates: start: 20240719, end: 20240719
  9. ROPIVACAINE HYDROCHLORIDE [Suspect]
     Active Substance: ROPIVACAINE HYDROCHLORIDE
     Indication: General anaesthesia
     Dosage: (ROPIVACAINE HYDROCHLORIDE ANHYDROUS) 40 MG 1 TOTAL (DOSAGR TEXT: 40 MG ONCE)
     Route: 042
     Dates: start: 20240719, end: 20240719
  10. LEVOBUPIVACAINE HYDROCHLORIDE [Suspect]
     Active Substance: LEVOBUPIVACAINE HYDROCHLORIDE
     Indication: General anaesthesia
     Dosage: 50 MG 1 TOTAL (DOSAGE TEXT: 50 MG ONCE)
     Route: 042
     Dates: start: 20240719, end: 20240719

REACTIONS (1)
  - Rash maculo-papular [Recovering/Resolving]

NARRATIVE: CASE EVENT DATE: 20240720
